FAERS Safety Report 10279570 (Version 1)
Quarter: 2014Q3

REPORT INFORMATION
  Report Type: Spontaneous
  Country: US (occurrence: US)
  Receive Date: 20140707
  Receipt Date: 20140707
  Transmission Date: 20150326
  Serious: Yes (Hospitalization)
  Sender: FDA-Public Use
  Company Number: US-JNJFOC-20140618083

PATIENT
  Age: 32 Year
  Sex: Male
  Weight: 97.52 kg

DRUGS (2)
  1. TESTOSTERONE. [Concomitant]
     Active Substance: TESTOSTERONE
     Indication: PRODUCT USED FOR UNKNOWN INDICATION
     Dosage: 1 YEAR
     Route: 065
  2. TYLENOL SINUS CONGESTION AND PAIN SEVERE [Suspect]
     Active Substance: ACETAMINOPHEN\GUAIFENESIN\PHENYLEPHRINE HYDROCHLORIDE
     Indication: MALAISE
     Dosage: FOR ABOUT A WEEK
     Route: 048
     Dates: end: 20140623

REACTIONS (2)
  - Off label use [Unknown]
  - Blood potassium decreased [Not Recovered/Not Resolved]
